FAERS Safety Report 5229715-2 (Version None)
Quarter: 2007Q1

REPORT INFORMATION
  Report Type: 
  Country: None (occurrence: None)
  Receive Date: 20070206
  Receipt Date: 20070131
  Transmission Date: 20070707
  Serious: Yes (Hospitalization)
  Sender: FDA-Public Use
  Company Number: US-BRISTOL-MYERS SQUIBB COMPANY-13664602

PATIENT
  Age: 27 Year
  Sex: Female
  Weight: 145 kg

DRUGS (4)
  1. ARIPIPRAZOLE [Suspect]
     Indication: BIPOLAR DISORDER
     Dates: start: 20061001, end: 20061101
  2. LAMICTAL [Suspect]
     Indication: BIPOLAR DISORDER
     Route: 048
     Dates: start: 20051001, end: 20061101
  3. ZIPRASIDONE HCL [Suspect]
     Indication: BIPOLAR DISORDER
     Dates: start: 20061101, end: 20061101
  4. CONTRACEPTIVE [Concomitant]
     Route: 048

REACTIONS (6)
  - DRUG INTERACTION [None]
  - HEPATIC ENZYME INCREASED [None]
  - HEPATITIS TOXIC [None]
  - JAUNDICE [None]
  - PRURITUS [None]
  - RASH MACULO-PAPULAR [None]
